FAERS Safety Report 14292571 (Version 4)
Quarter: 2018Q2

REPORT INFORMATION
  Report Type: Spontaneous
  Country: IT (occurrence: IT)
  Receive Date: 20171215
  Receipt Date: 20180430
  Transmission Date: 20180711
  Serious: Yes (Hospitalization)
  Sender: FDA-Public Use
  Company Number: IT-PFIZER INC-2017533494

PATIENT
  Age: 6 Year
  Sex: Female
  Weight: 24 kg

DRUGS (26)
  1. RABBIT ANTI-HUMAN THYMOCYTE IMMUNOGLOBULIN [Suspect]
     Active Substance: LAPINE T-LYMPHOCYTE IMMUNE GLOBULIN
     Indication: ALLOGENIC BONE MARROW TRANSPLANTATION THERAPY
     Dosage: 63 MG, 1X/DAY
     Route: 042
     Dates: start: 20161220, end: 20161221
  2. PERFALGAN [Concomitant]
     Active Substance: ACETAMINOPHEN
     Dosage: 375 MG, 1X/DAY
     Dates: start: 20161220, end: 20161221
  3. TRIMETON [Concomitant]
     Active Substance: CHLORPHENIRAMINE MALEATE
     Dosage: 10 MG, 1X/DAY
     Dates: start: 20161220, end: 20161221
  4. TEGRETOL [Concomitant]
     Active Substance: CARBAMAZEPINE
     Dosage: 240 MG, 1X/DAY
     Dates: start: 20161213, end: 20161218
  5. DELTACORTENE [Concomitant]
     Active Substance: PREDNISONE
     Dosage: 12.5 MG, 1X/DAY
     Dates: start: 20161213, end: 20161220
  6. LASIX [Concomitant]
     Active Substance: FUROSEMIDE
     Dosage: 48 MG, 1X/DAY, CUMULATIVE DOSE TO FIRST REACTION 528 MG
     Route: 042
     Dates: start: 20161213
  7. ACICLOVIR [Concomitant]
     Active Substance: ACYCLOVIR
     Dosage: 1800 MG, 1X/DAY
     Dates: start: 20161212, end: 20161218
  8. ENDOXAN-BAXTER [Suspect]
     Active Substance: CYCLOPHOSPHAMIDE
     Indication: ALLOGENIC BONE MARROW TRANSPLANTATION THERAPY
     Dosage: 1420 MG, 1X/DAY
     Route: 042
     Dates: start: 20161218, end: 20161219
  9. BUSILVEX [Suspect]
     Active Substance: BUSULFAN
     Indication: ALLOGENIC BONE MARROW TRANSPLANTATION THERAPY
     Dosage: 90 MG, 1X/DAY
     Route: 042
     Dates: start: 20161214, end: 20161217
  10. ACICLOVIR [Concomitant]
     Active Substance: ACYCLOVIR
     Dosage: 1350 MG, 1X/DAY
     Dates: start: 20161219
  11. METHOTREXATE SODIUM. [Suspect]
     Active Substance: METHOTREXATE SODIUM
     Indication: ALLOGENIC BONE MARROW TRANSPLANTATION THERAPY
     Dosage: 8.8 MG, CYCLIC
     Route: 042
     Dates: start: 20161223, end: 20161228
  12. URSODEOXYCHOLIC ACID [Concomitant]
     Active Substance: URSODIOL
     Dosage: 240 MG, 1X/DAY
     Dates: start: 20161212, end: 20170120
  13. ALKERAN [Suspect]
     Active Substance: MELPHALAN
     Indication: ALLOGENIC BONE MARROW TRANSPLANTATION THERAPY
     Dosage: 123 MG, SINGLE DOSE
     Route: 042
     Dates: start: 20161220, end: 20161220
  14. RANITIDINE. [Concomitant]
     Active Substance: RANITIDINE
     Dosage: 100 MG, 1X/DAY
     Route: 042
     Dates: start: 20161213
  15. SANDIMMUN [Concomitant]
     Active Substance: CYCLOSPORINE
     Dosage: 72 MG, 1X/DAY
     Dates: start: 20161220
  16. EMEND [Concomitant]
     Active Substance: APREPITANT
     Dosage: UNK
     Dates: start: 20161214, end: 20161216
  17. DIAMINOCILLINA [Concomitant]
     Active Substance: PENICILLIN G BENZATHINE
     Dosage: 600000 KIU, UNK
     Dates: start: 20161213
  18. HEPARIN [Concomitant]
     Active Substance: HEPARIN SODIUM
     Dosage: 2370 KIU, 1X/DAY
     Route: 042
     Dates: start: 20161213
  19. ALOXI [Concomitant]
     Active Substance: PALONOSETRON HYDROCHLORIDE
     Dosage: 120 MG, AS NEEDED
     Route: 042
     Dates: start: 20161214, end: 20161217
  20. BACTRIM [Concomitant]
     Active Substance: SULFAMETHOXAZOLE\TRIMETHOPRIM
     Dosage: 5 ML, ALTERNATE DAY
  21. LASIX [Concomitant]
     Active Substance: FUROSEMIDE
     Dosage: 0.5 DF, 1X/DAY
     Dates: start: 20171212, end: 20171212
  22. NYSTATIN. [Concomitant]
     Active Substance: NYSTATIN
     Dosage: 15 ML, 1X/DAY
     Route: 048
     Dates: start: 20161212, end: 20170120
  23. CIPROFLOXACIN. [Concomitant]
     Active Substance: CIPROFLOXACIN
     Dosage: 500 MG, 1X/DAY
     Route: 048
     Dates: start: 20161212, end: 20161229
  24. ITRACONAZOLE. [Concomitant]
     Active Substance: ITRACONAZOLE
     Dosage: 120 MG, 1X/DAY
     Route: 048
     Dates: start: 20161212, end: 20161229
  25. URBASON /00049601/ [Concomitant]
     Active Substance: METHYLPREDNISOLONE
     Dosage: 24 MG, 1X/DAY
     Route: 042
     Dates: start: 20161220, end: 20161221
  26. PRIVIGEN [Concomitant]
     Active Substance: HUMAN IMMUNOGLOBULIN G
     Dosage: 10 G, AS NEEDED
     Dates: start: 20161217, end: 20170109

REACTIONS (7)
  - Culture stool positive [Recovering/Resolving]
  - Conjunctivitis [Recovering/Resolving]
  - Palmar erythema [Recovering/Resolving]
  - Diarrhoea [Recovering/Resolving]
  - Candida test positive [Recovering/Resolving]
  - Erythema [Recovering/Resolving]
  - Abdominal pain [Recovering/Resolving]

NARRATIVE: CASE EVENT DATE: 20161223
